FAERS Safety Report 20937528 (Version 1)
Quarter: 2022Q2

REPORT INFORMATION
  Report Type: Spontaneous
  Country: US (occurrence: None)
  Receive Date: 20220608
  Receipt Date: 20220608
  Transmission Date: 20220721
  Serious: Yes (Hospitalization)
  Sender: FDA-Public Use
  Company Number: None

PATIENT
  Age: 72 Year
  Sex: Male

DRUGS (1)
  1. ROSUVASTATIN CALCIUM [Suspect]
     Active Substance: ROSUVASTATIN CALCIUM
     Indication: Hyperlipidaemia
     Dosage: 40 MG AT BETIME PO?
     Route: 048
     Dates: start: 20131007, end: 20220202

REACTIONS (5)
  - Acute kidney injury [None]
  - Rhabdomyolysis [None]
  - Haematuria [None]
  - Cystitis [None]
  - Ureteric obstruction [None]

NARRATIVE: CASE EVENT DATE: 20220202
